FAERS Safety Report 9068476 (Version 2)
Quarter: 2013Q2

REPORT INFORMATION
  Report Type: Spontaneous
  Country: FI (occurrence: FI)
  Receive Date: 20130206
  Receipt Date: 20130510
  Transmission Date: 20140414
  Serious: Yes (Hospitalization)
  Sender: FDA-Public Use
  Company Number: FI-ELI_LILLY_AND_COMPANY-FI201301009079

PATIENT
  Age: 67 Year
  Sex: Female
  Weight: 65 kg

DRUGS (16)
  1. FORSTEO [Suspect]
     Indication: OSTEOPOROSIS
     Dosage: 20 UG, QD
     Route: 058
     Dates: start: 20111107
  2. SANDIMUN [Concomitant]
     Indication: TRANSPLANT REJECTION
     Dosage: UNK
  3. SOLUMEDROL [Concomitant]
     Indication: TRANSPLANT REJECTION
     Dosage: 4 MG, UNK
  4. SELOKEN ZOC [Concomitant]
     Indication: HYPERTENSION
     Dosage: UNK
  5. COZAAR [Concomitant]
     Indication: HYPERTENSION
     Dosage: UNK
  6. NORVASC [Concomitant]
     Indication: HYPERTENSION
     Dosage: UNK
  7. ADURSAL [Concomitant]
     Indication: TOTAL BILE ACIDS
     Dosage: UNK
  8. PENDYSIN [Concomitant]
     Indication: INFECTION
     Dosage: UNK
  9. FRAGMIN [Concomitant]
     Dosage: UNK
  10. VAGIFEM [Concomitant]
     Indication: OESTROGEN REPLACEMENT THERAPY
     Dosage: UNK
  11. LIPITOR [Concomitant]
     Indication: HYPERCHOLESTEROLAEMIA
     Dosage: UNK
  12. CALCIUM + VITAMIN D [Concomitant]
     Indication: MEDICAL DIET
     Dosage: UNK
  13. EMGESAN [Concomitant]
     Indication: MEDICAL DIET
     Dosage: UNK
  14. ELOCON [Concomitant]
     Indication: ECZEMA
     Dosage: UNK
  15. TRIPTYL [Concomitant]
     Indication: PAIN
     Dosage: UNK
     Dates: start: 201205
  16. OXYNORM [Concomitant]
     Indication: PAIN
     Dosage: UNK

REACTIONS (1)
  - Renal failure [Not Recovered/Not Resolved]
